FAERS Safety Report 12543870 (Version 1)
Quarter: 2016Q3

REPORT INFORMATION
  Report Type: Spontaneous
  Country: IN (occurrence: None)
  Receive Date: 20160708
  Receipt Date: 20160708
  Transmission Date: 20161109
  Serious: No
  Sender: FDA-Public Use
  Company Number: None

PATIENT
  Age: 4 Day
  Sex: Male
  Weight: 100 kg

DRUGS (3)
  1. TRULICITY [Suspect]
     Active Substance: DULAGLUTIDE
  2. DIOVAN [Concomitant]
     Active Substance: VALSARTAN
  3. EFFECKSOR [Concomitant]

REACTIONS (1)
  - Blood thyroid stimulating hormone increased [None]

NARRATIVE: CASE EVENT DATE: 20160705
